FAERS Safety Report 12733276 (Version 2)
Quarter: 2016Q4

REPORT INFORMATION
  Report Type: Spontaneous
  Country: SI (occurrence: SI)
  Receive Date: 20160912
  Receipt Date: 20161011
  Transmission Date: 20170207
  Serious: Yes (Other)
  Sender: FDA-Public Use
  Company Number: SI-BAYER-2016-174056

PATIENT
  Age: 65 Year
  Sex: Female

DRUGS (2)
  1. CLARITINE [Suspect]
     Active Substance: LORATADINE
     Indication: HYPERSENSITIVITY
     Dosage: 1 DF, ONCE
  2. CLARITINE [Suspect]
     Active Substance: LORATADINE
     Indication: LIP SWELLING

REACTIONS (1)
  - Arrhythmia [Recovered/Resolved]
